FAERS Safety Report 6870826-3 (Version None)
Quarter: 2010Q3

REPORT INFORMATION
  Report Type: 
  Country: None (occurrence: None)
  Receive Date: 20100723
  Receipt Date: 20100712
  Transmission Date: 20110219
  Serious: Yes (Hospitalization)
  Sender: FDA-Public Use
  Company Number: IT-ELI_LILLY_AND_COMPANY-IT201007002524

PATIENT
  Sex: Female

DRUGS (2)
  1. CYMBALTA [Suspect]
     Indication: DEPRESSION
     Dosage: 60 MG, UNK
     Route: 048
     Dates: start: 20100527, end: 20100527
  2. CYMBALTA [Suspect]
     Dosage: 5040 MG, UNK
     Dates: start: 20100527, end: 20100527

REACTIONS (2)
  - DRUG ABUSE [None]
  - DRUG SCREEN POSITIVE [None]
